FAERS Safety Report 22693369 (Version 4)
Quarter: 2024Q1

REPORT INFORMATION
  Report Type: Spontaneous
  Country: PT (occurrence: PT)
  Receive Date: 20230711
  Receipt Date: 20240110
  Transmission Date: 20240410
  Serious: Yes (Life-Threatening, Other)
  Sender: FDA-Public Use
  Company Number: PT-SAMSUNG BIOEPIS-SB-2023-18256

PATIENT
  Age: 16 Year
  Sex: Female
  Weight: 59 kg

DRUGS (5)
  1. INFLIXIMAB [Suspect]
     Active Substance: INFLIXIMAB
     Indication: Adenosine deaminase 2 deficiency
     Dosage: FREQUENCY:6/6 WEEKS
     Route: 042
  2. INFLIXIMAB [Suspect]
     Active Substance: INFLIXIMAB
     Dosage: UNKNOWN
     Route: 065
     Dates: start: 20221003
  3. INFLIXIMAB [Suspect]
     Active Substance: INFLIXIMAB
     Dosage: UNKNOWN
     Route: 065
     Dates: start: 20220706, end: 20221010
  4. INFLIXIMAB [Suspect]
     Active Substance: INFLIXIMAB
     Dosage: UNKNOWN
     Route: 065
     Dates: start: 20220822
  5. ETANERCEPT [Suspect]
     Active Substance: ETANERCEPT
     Indication: Adenosine deaminase 2 deficiency
     Route: 058

REACTIONS (7)
  - Cutaneous vasculitis [Recovered/Resolved]
  - Myopericarditis [Recovered/Resolved]
  - Lymphoedema [Recovered/Resolved]
  - Cardiac disorder [Recovered/Resolved]
  - Peripheral ischaemia [Recovered/Resolved]
  - Drug ineffective for unapproved indication [Unknown]
  - Off label use [Unknown]
